FAERS Safety Report 6686468-9 (Version None)
Quarter: 2010Q2

REPORT INFORMATION
  Report Type: 
  Country: None (occurrence: None)
  Receive Date: 20100419
  Receipt Date: 20100414
  Transmission Date: 20101027
  Serious: Yes (Hospitalization)
  Sender: FDA-Public Use
  Company Number: DE-ROCHE-595780

PATIENT
  Age: 38 Year
  Sex: Male
  Weight: 81 kg

DRUGS (6)
  1. DIAZEPAM [Suspect]
     Indication: DRUG USE FOR UNKNOWN INDICATION
     Route: 048
     Dates: start: 20080521, end: 20080601
  2. ABILIFY [Suspect]
     Dosage: TAKEN IRREGULARLY
     Route: 048
     Dates: start: 20040101, end: 20080520
  3. ABILIFY [Suspect]
     Route: 048
     Dates: start: 20080522, end: 20080531
  4. ABILIFY [Suspect]
     Route: 048
     Dates: start: 20080702
  5. AKINETON [Concomitant]
     Dosage: DOSE^ 1X1 PROLONGED RELEASE TABLET AT 4 MG DAILY^ [8 MG{4 MG, 1DAY}]
     Dates: start: 20080527, end: 20080528
  6. RISPERDAL [Concomitant]
     Dosage: DOSE: SIGLE DOSE DIFFERENT
     Route: 048
     Dates: start: 20080529, end: 20080603

REACTIONS (1)
  - HEPATITIS ACUTE [None]
